FAERS Safety Report 6116803-1 (Version None)
Quarter: 2009Q1

REPORT INFORMATION
  Report Type: 
  Country: None (occurrence: None)
  Receive Date: 20090314
  Receipt Date: 20081225
  Transmission Date: 20090719
  Serious: No
  Sender: FDA-Public Use
  Company Number: US-ABBOTT-08P-163-0494946-00

PATIENT
  Sex: Male
  Weight: 71.732 kg

DRUGS (11)
  1. HUMIRA [Suspect]
     Indication: CROHN'S DISEASE
  2. HUMIRA [Suspect]
     Indication: ANKYLOSING SPONDYLITIS
  3. HUMIRA [Suspect]
  4. ZOFRAN [Concomitant]
     Indication: NAUSEA
  5. AMBIEN [Concomitant]
     Indication: INSOMNIA
  6. XANAX [Concomitant]
     Indication: DRUG USE FOR UNKNOWN INDICATION
  7. IMURAN [Concomitant]
     Indication: DRUG USE FOR UNKNOWN INDICATION
  8. BENTYL [Concomitant]
     Indication: DRUG USE FOR UNKNOWN INDICATION
  9. CYMBALTA [Concomitant]
     Indication: DRUG USE FOR UNKNOWN INDICATION
  10. WELLBUTRIN [Concomitant]
     Indication: DRUG USE FOR UNKNOWN INDICATION
  11. PERCOCET [Concomitant]
     Indication: PAIN

REACTIONS (6)
  - DERMATITIS ACNEIFORM [None]
  - FATIGUE [None]
  - FURUNCLE [None]
  - HYPERHIDROSIS [None]
  - NAUSEA [None]
  - SYNCOPE [None]
